FAERS Safety Report 10199501 (Version 1)
Quarter: 2014Q2

REPORT INFORMATION
  Report Type: Spontaneous
  Country: FR (occurrence: FR)
  Receive Date: 20140527
  Receipt Date: 20140527
  Transmission Date: 20141212
  Serious: Yes (Hospitalization)
  Sender: FDA-Public Use
  Company Number: FR-UCBSA-121842

PATIENT
  Sex: 0

DRUGS (4)
  1. KEPPRA [Suspect]
     Dosage: 250MG
     Route: 048
     Dates: end: 2013
  2. LAMICTAL [Suspect]
     Dosage: 100MG; DOSE PROGRESSIVELY INCREASED EVERY 10 DAYS
     Route: 048
     Dates: start: 201307
  3. VALPROATE [Concomitant]
  4. ZONEGRAN [Concomitant]

REACTIONS (1)
  - Toxic skin eruption [Unknown]
